FAERS Safety Report 10650256 (Version 2)
Quarter: 2015Q2

REPORT INFORMATION
  Report Type: Spontaneous
  Country: JP (occurrence: JP)
  Receive Date: 20141212
  Receipt Date: 20150428
  Transmission Date: 20150821
  Serious: Yes (Death, Other)
  Sender: FDA-Public Use
  Company Number: JP-GLAXOSMITHKLINE-JP2014JPN032809

PATIENT
  Age: 74 Year
  Sex: Male
  Weight: 54 kg

DRUGS (3)
  1. LAMICTAL [Suspect]
     Active Substance: LAMOTRIGINE
     Indication: GENERALISED TONIC-CLONIC SEIZURE
  2. LAMICTAL [Suspect]
     Active Substance: LAMOTRIGINE
     Indication: SEIZURE
     Dosage: UNK
     Route: 048
     Dates: start: 20141006
  3. LAMICTAL [Suspect]
     Active Substance: LAMOTRIGINE
     Indication: COMPLEX PARTIAL SEIZURES
     Dosage: 75 MG, QD
     Route: 048

REACTIONS (4)
  - Sudden unexplained death in epilepsy [Fatal]
  - Fall [Unknown]
  - Cardio-respiratory arrest [Unknown]
  - Pleural effusion [Unknown]

NARRATIVE: CASE EVENT DATE: 20141129
